FAERS Safety Report 6523596-2 (Version None)
Quarter: 2009Q4

REPORT INFORMATION
  Report Type: 
  Country: None (occurrence: None)
  Receive Date: 20091231
  Receipt Date: 20091222
  Transmission Date: 20100525
  Serious: Yes (Hospitalization)
  Sender: FDA-Public Use
  Company Number: PHHY2009GB57849

PATIENT

DRUGS (1)
  1. EXELON [Suspect]

REACTIONS (2)
  - CEREBROVASCULAR ACCIDENT [None]
  - WRONG TECHNIQUE IN DRUG USAGE PROCESS [None]
